FAERS Safety Report 19471130 (Version 1)
Quarter: 2021Q2

REPORT INFORMATION
  Report Type: Spontaneous
  Country: US (occurrence: US)
  Receive Date: 20210628
  Receipt Date: 20210628
  Transmission Date: 20210717
  Serious: No
  Sender: FDA-Public Use
  Company Number: US-ACERTIS-2020VTS00056

PATIENT
  Sex: Female
  Weight: 126.08 kg

DRUGS (3)
  1. DICLOFENAC [Concomitant]
     Active Substance: DICLOFENAC
     Indication: PAIN
     Dosage: UNK, AS NEEDED
  2. PROGESTERONE. [Suspect]
     Active Substance: PROGESTERONE
     Indication: TRANS-SEXUALISM
     Dosage: 100 MG, 1X/DAY
     Route: 048
     Dates: start: 202002
  3. ESTRADIOL. [Concomitant]
     Active Substance: ESTRADIOL

REACTIONS (3)
  - Product residue present [Not Recovered/Not Resolved]
  - Off label use [Not Recovered/Not Resolved]
  - Dyspepsia [Not Recovered/Not Resolved]

NARRATIVE: CASE EVENT DATE: 2020
